FAERS Safety Report 8800569 (Version 2)
Quarter: 2012Q4

REPORT INFORMATION
  Report Type: 
  Country: US (occurrence: US)
  Receive Date: 20120921
  Receipt Date: 20120925
  Transmission Date: 20130627
  Serious: Yes (Death)
  Sender: FDA-Public Use
  Company Number: US-ROCHE-1123559

PATIENT
  Sex: Female

DRUGS (2)
  1. AVASTIN [Suspect]
     Indication: LUNG NEOPLASM MALIGNANT
     Route: 050
     Dates: start: 20080313, end: 20080424
  2. AVASTIN [Suspect]
     Route: 065
     Dates: start: 20080702, end: 20080912

REACTIONS (1)
  - Death [Fatal]
